FAERS Safety Report 7743599-X (Version None)
Quarter: 2011Q3

REPORT INFORMATION
  Report Type: 
  Country: None (occurrence: None)
  Receive Date: 20110912
  Receipt Date: 20110906
  Transmission Date: 20111222
  Serious: Yes (Hospitalization)
  Sender: FDA-Public Use
  Company Number: US-B.I. PHARMACEUTICALS,INC./RIDGEFIELD-2011-BP-17355BP

PATIENT
  Age: 93 Year
  Sex: Female
  Weight: 62.6 kg

DRUGS (1)
  1. PRADAXA [Suspect]
     Indication: ATRIAL FIBRILLATION
     Route: 048
     Dates: start: 20110630, end: 20110707

REACTIONS (2)
  - COLON CANCER [None]
  - LARGE INTESTINAL HAEMORRHAGE [None]
